FAERS Safety Report 6213005-5 (Version None)
Quarter: 2009Q2

REPORT INFORMATION
  Report Type: 
  Country: None (occurrence: None)
  Receive Date: 20090602
  Receipt Date: 20090602
  Transmission Date: 20091009
  Serious: Yes (Other)
  Sender: FDA-Public Use
  Company Number: None

PATIENT
  Age: 62 Year
  Sex: Male
  Weight: 88.4514 kg

DRUGS (2)
  1. TRAZODONE HCL [Suspect]
     Dosage: 45 MG NIGHTLY PO
     Route: 048
     Dates: start: 20090325, end: 20090529
  2. DESYREL [Suspect]

REACTIONS (5)
  - DEPRESSION SUICIDAL [None]
  - FATIGUE [None]
  - INFLUENZA [None]
  - PRODUCT SUBSTITUTION ISSUE [None]
  - SOMNOLENCE [None]
